FAERS Safety Report 12278267 (Version 1)
Quarter: 2016Q2

REPORT INFORMATION
  Report Type: Report from Study
  Country: US (occurrence: US)
  Receive Date: 20160418
  Receipt Date: 20160418
  Transmission Date: 20160815
  Serious: Yes (Hospitalization, Other)
  Sender: FDA-Public Use
  Company Number: ADR-2015-00435

PATIENT
  Age: 72 Year
  Sex: Female

DRUGS (12)
  1. HYDROMORPHONE [Suspect]
     Active Substance: HYDROMORPHONE
     Dosage: 0.0500 MG/DAY
     Route: 037
     Dates: start: 20140612
  2. HYDROMORPHONE [Suspect]
     Active Substance: HYDROMORPHONE
     Dosage: 0.1920 MG/DAY
     Route: 037
     Dates: start: 20150627
  3. HYDROMORPHONE [Suspect]
     Active Substance: HYDROMORPHONE
     Dosage: 0.2020 MG/DAY
     Route: 037
     Dates: start: 20150623
  4. BACLOFEN. [Suspect]
     Active Substance: BACLOFEN
     Dosage: 59.98 MCG/DAY
     Route: 037
     Dates: start: 20150627
  5. MORPHINE [Suspect]
     Active Substance: MORPHINE
     Dosage: 0.2404 MG/DAY
     Route: 037
     Dates: start: 20140515, end: 20140612
  6. BACLOFEN. [Suspect]
     Active Substance: BACLOFEN
     Route: 037
  7. ZANAFLEX [Suspect]
     Active Substance: TIZANIDINE HYDROCHLORIDE
     Dosage: 4 MG PO BID PRN
     Route: 048
     Dates: end: 20140529
  8. COMPOUNDED BACLOFEN [Suspect]
     Active Substance: BACLOFEN
     Dosage: 12.50 MCG/DAY
     Route: 037
     Dates: start: 20140612
  9. ATIVAN [Suspect]
     Active Substance: LORAZEPAM
     Dosage: 1 MG PO QID PRN
     Route: 048
     Dates: start: 20140531
  10. HYDROCODONE [Suspect]
     Active Substance: HYDROCODONE
     Dosage: 7.5 MG AS NEEDED
     Dates: start: 20140530
  11. VALIUM [Suspect]
     Active Substance: DIAZEPAM
     Route: 065
     Dates: start: 20140530, end: 20140530
  12. BACLOFEN. [Suspect]
     Active Substance: BACLOFEN
     Dosage: 63.13 MCG/DAY
     Route: 037
     Dates: start: 20150623

REACTIONS (2)
  - Muscle spasms [Not Recovered/Not Resolved]
  - Muscle twitching [Recovered/Resolved]

NARRATIVE: CASE EVENT DATE: 20140521
